FAERS Safety Report 18947984 (Version 2)
Quarter: 2021Q1

REPORT INFORMATION
  Report Type: Spontaneous
  Country: US (occurrence: US)
  Receive Date: 20210226
  Receipt Date: 20210324
  Transmission Date: 20210420
  Serious: Yes (Other)
  Sender: FDA-Public Use
  Company Number: US-ORGANON-2102USA003781

PATIENT
  Age: 20 Year
  Sex: Female

DRUGS (1)
  1. NEXPLANON [Suspect]
     Active Substance: ETONOGESTREL
     Dosage: 1 DOSAGE FORM, (1 IMPLANT )
     Route: 059
     Dates: start: 202005

REACTIONS (5)
  - Device dislocation [Not Recovered/Not Resolved]
  - No adverse event [Unknown]
  - Complication associated with device [Not Recovered/Not Resolved]
  - Vaginal haemorrhage [Unknown]
  - Complication of device removal [Not Recovered/Not Resolved]

NARRATIVE: CASE EVENT DATE: 20210204
